FAERS Safety Report 10918497 (Version 1)
Quarter: 2015Q1

REPORT INFORMATION
  Report Type: Spontaneous
  Country: US (occurrence: None)
  Receive Date: 20150311
  Receipt Date: 20150311
  Transmission Date: 20150721
  Serious: Yes (Death, Hospitalization, Other)
  Sender: FDA-Public Use
  Company Number: 2015COV00047

PATIENT
  Age: 80 Year
  Sex: Female
  Weight: 56.7 kg

DRUGS (3)
  1. ADCIRCA [Concomitant]
     Active Substance: TADALAFIL
  2. REMODULIN [Suspect]
     Active Substance: TREPROSTINIL
     Indication: PULMONARY HYPERTENSION
     Route: 042
     Dates: start: 20100326
  3. DIGOXIN (DIGOXIN) [Suspect]
     Active Substance: DIGOXIN

REACTIONS (7)
  - Nephropathy [None]
  - Pneumonia [None]
  - Condition aggravated [None]
  - Confusional state [None]
  - Pulmonary arterial hypertension [None]
  - Azotaemia [None]
  - Drug hypersensitivity [None]

NARRATIVE: CASE EVENT DATE: 201501
